FAERS Safety Report 4726010-2 (Version None)
Quarter: 2005Q3

REPORT INFORMATION
  Report Type: 
  Country: None (occurrence: None)
  Receive Date: 20050727
  Receipt Date: 20050525
  Transmission Date: 20060218
  Serious: Yes (Hospitalization)
  Sender: FDA-Public Use
  Company Number: JP-MERCK-0505USA03452

PATIENT
  Age: 59 Year
  Sex: Male
  Weight: 45 kg

DRUGS (5)
  1. DECADRON PHOSPHATE [Suspect]
     Indication: ACUTE LYMPHOCYTIC LEUKAEMIA
     Route: 042
     Dates: start: 20031006, end: 20031009
  2. DECADRON PHOSPHATE [Suspect]
     Route: 042
     Dates: start: 20031016, end: 20031019
  3. ENDOXAN [Concomitant]
     Indication: ACUTE LYMPHOCYTIC LEUKAEMIA
     Route: 042
     Dates: start: 20031006, end: 20031008
  4. VINCRISTINE SULFATE [Concomitant]
     Indication: ACUTE LYMPHOCYTIC LEUKAEMIA
     Route: 042
     Dates: start: 20031009, end: 20031009
  5. ADRIACIN [Concomitant]
     Indication: ACUTE LYMPHOCYTIC LEUKAEMIA
     Route: 042
     Dates: start: 20031009, end: 20031009

REACTIONS (1)
  - HEPATITIS B [None]
